FAERS Safety Report 5761978-7 (Version None)
Quarter: 2008Q2

REPORT INFORMATION
  Report Type: 
  Country: None (occurrence: None)
  Receive Date: 20080603
  Receipt Date: 20080523
  Transmission Date: 20081010
  Serious: Yes (Hospitalization)
  Sender: FDA-Public Use
  Company Number: 163-C5013-08050240

PATIENT
  Age: 63 Year
  Sex: Female
  Weight: 53.3 kg

DRUGS (6)
  1. CC-5013 (LENALIDOMIDE) [Suspect]
     Indication: CHRONIC LYMPHOCYTIC LEUKAEMIA
     Dosage: 2.5 MG, ORAL
     Route: 048
     Dates: start: 20080429
  2. ALLOPURINOL [Concomitant]
  3. BACTRIM [Concomitant]
  4. CARTIA XT [Concomitant]
  5. NEXIUM [Concomitant]
  6. TESSALON [Concomitant]

REACTIONS (6)
  - BACK PAIN [None]
  - NAUSEA [None]
  - OVERDOSE [None]
  - PAIN [None]
  - TUMOUR FLARE [None]
  - VOMITING [None]
